FAERS Safety Report 17005141 (Version 1)
Quarter: 2019Q4

REPORT INFORMATION
  Report Type: Spontaneous
  Country: CN (occurrence: CN)
  Receive Date: 20191107
  Receipt Date: 20191107
  Transmission Date: 20200122
  Serious: Yes (Disabling)
  Sender: FDA-Public Use
  Company Number: CN-BAXTER-2019BAX022274

PATIENT
  Age: 65 Year
  Sex: Female
  Weight: 65 kg

DRUGS (6)
  1. ELOXATIN [Suspect]
     Active Substance: OXALIPLATIN
     Indication: GASTRIC CANCER
     Route: 041
     Dates: start: 20190830, end: 20190830
  2. AISIWAN [GIMERACIL\OTERACIL\TEGAFUR] [Suspect]
     Active Substance: GIMERACIL\OTERACIL\TEGAFUR
     Indication: GASTRIC CANCER
     Route: 048
     Dates: start: 20190830, end: 20190912
  3. 5% GLUCOSE  INJECTION [Suspect]
     Active Substance: DEXTROSE
     Dosage: DOSE REINTRODUCED
     Route: 041
  4. AISIWAN [GIMERACIL\OTERACIL\TEGAFUR] [Suspect]
     Active Substance: GIMERACIL\OTERACIL\TEGAFUR
     Dosage: DOSE REINTRODUCED
     Route: 048
  5. ELOXATIN [Suspect]
     Active Substance: OXALIPLATIN
     Dosage: DOSE REINTRODUCED
     Route: 041
  6. 5% GLUCOSE  INJECTION [Suspect]
     Active Substance: DEXTROSE
     Indication: MEDICATION DILUTION
     Route: 041
     Dates: start: 20190830, end: 20190830

REACTIONS (1)
  - Pancytopenia [Recovering/Resolving]

NARRATIVE: CASE EVENT DATE: 20190920
